FAERS Safety Report 4310208-1 (Version None)
Quarter: 2004Q1

REPORT INFORMATION
  Report Type: 
  Country: None (occurrence: None)
  Receive Date: 20040301
  Receipt Date: 20040106
  Transmission Date: 20041129
  Serious: No
  Sender: FDA-Public Use
  Company Number: WAES 0401USA00176

PATIENT
  Age: 76 Year
  Sex: Male

DRUGS (1)
  1. ZETIA [Suspect]
     Dosage: 10MG/DAILY/PO
     Dates: start: 20030601

REACTIONS (1)
  - FAT EMBOLISM [None]
